FAERS Safety Report 11267358 (Version 1)
Quarter: 2015Q3

REPORT INFORMATION
  Report Type: Spontaneous
  Country: US (occurrence: US)
  Receive Date: 20150713
  Receipt Date: 20150713
  Transmission Date: 20151125
  Serious: No
  Sender: FDA-Public Use
  Company Number: CHPA2015US008405

PATIENT
  Age: 68 Year
  Sex: Female

DRUGS (4)
  1. TYLENOL [Concomitant]
     Active Substance: ACETAMINOPHEN
     Indication: PRODUCT USED FOR UNKNOWN INDICATION
     Route: 065
  2. VOLTAREN [Suspect]
     Active Substance: DICLOFENAC SODIUM
     Indication: ARTHRITIS
     Dosage: 4 GRAMS ON THE KNEES, 1 OR 2 TIMES A DAY
     Route: 061
  3. VOLTAREN [Suspect]
     Active Substance: DICLOFENAC SODIUM
     Dosage: 2 GRAMS ON HANDS AND FEET 1 OR 2  TIMES A DAY
     Route: 061
  4. VOLTAREN [Suspect]
     Active Substance: DICLOFENAC SODIUM
     Dosage: 1-4 GRAMS ON THE BACK AND SHOULDER, 1 OR 2 TIMES A DAY
     Route: 061

REACTIONS (4)
  - Inappropriate schedule of drug administration [Unknown]
  - Drug administered at inappropriate site [Unknown]
  - Incorrect dose administered [Unknown]
  - Therapeutic response unexpected [Unknown]
